FAERS Safety Report 14986396 (Version 1)
Quarter: 2018Q2

REPORT INFORMATION
  Report Type: Spontaneous
  Country: ES (occurrence: ES)
  Receive Date: 20180607
  Receipt Date: 20180607
  Transmission Date: 20180711
  Serious: Yes (Hospitalization)
  Sender: FDA-Public Use
  Company Number: ES-ASTRAZENECA-2018SE71960

PATIENT
  Age: 66 Year
  Sex: Male

DRUGS (3)
  1. CLOTIAZEPAM [Suspect]
     Active Substance: CLOTIAZEPAM
     Route: 065
     Dates: start: 20180501, end: 20180507
  2. TRAZODONE [Suspect]
     Active Substance: TRAZODONE HYDROCHLORIDE
     Route: 065
     Dates: start: 20180501, end: 20180507
  3. QUETIAPINE. [Suspect]
     Active Substance: QUETIAPINE
     Route: 048
     Dates: start: 20180501, end: 20180507

REACTIONS (2)
  - Poisoning [Recovering/Resolving]
  - Encephalopathy [Recovering/Resolving]

NARRATIVE: CASE EVENT DATE: 20180507
